FAERS Safety Report 23696822 (Version 1)
Quarter: 2024Q2

REPORT INFORMATION
  Report Type: Spontaneous
  Country: US (occurrence: None)
  Receive Date: 20240401
  Receipt Date: 20240401
  Transmission Date: 20240716
  Serious: No
  Sender: FDA-Public Use
  Company Number: None

PATIENT
  Age: 40 Year
  Sex: Female

DRUGS (6)
  1. MOUNJARO [Suspect]
     Active Substance: TIRZEPATIDE
     Indication: Non-alcoholic steatohepatitis
     Dates: start: 20220601, end: 20240401
  2. MOUNJARO [Suspect]
     Active Substance: TIRZEPATIDE
     Indication: Hypertension
  3. MOUNJARO [Suspect]
     Active Substance: TIRZEPATIDE
     Indication: Blood cholesterol increased
  4. RABEPRAZOLE [Concomitant]
     Active Substance: RABEPRAZOLE
  5. carvidopa/levodopa [Concomitant]
  6. DIVIGEL [Concomitant]

REACTIONS (5)
  - Oropharyngeal spasm [None]
  - Dysphagia [None]
  - Muscle tightness [None]
  - Neck pain [None]
  - Suicidal ideation [None]
